FAERS Safety Report 4918510-7 (Version None)
Quarter: 2006Q1

REPORT INFORMATION
  Report Type: 
  Country: None (occurrence: None)
  Receive Date: 20060221
  Receipt Date: 20060221
  Transmission Date: 20060701
  Serious: No
  Sender: FDA-Public Use
  Company Number: None

PATIENT
  Age: 55 Year
  Sex: Female
  Weight: 68.0396 kg

DRUGS (2)
  1. FLUOXETINE HCL [Suspect]
     Dosage: 40 MG
     Dates: start: 20010401
  2. PROZAC [Suspect]
     Dosage: 40 MG
     Dates: start: 20011001

REACTIONS (2)
  - HOSPITALISATION [None]
  - PHARMACEUTICAL PRODUCT COMPLAINT [None]
